FAERS Safety Report 17470844 (Version 4)
Quarter: 2020Q2

REPORT INFORMATION
  Report Type: Report from Study
  Country: US (occurrence: US)
  Receive Date: 20200227
  Receipt Date: 20200501
  Transmission Date: 20200713
  Serious: Yes (Other)
  Sender: FDA-Public Use
  Company Number: NVSC2020US054725

PATIENT
  Age: 73 Year
  Sex: Female

DRUGS (1)
  1. BEOVU [Suspect]
     Active Substance: BROLUCIZUMAB-DBLL
     Indication: NEOVASCULAR AGE-RELATED MACULAR DEGENERATION
     Dosage: 1 DF, UNKNOWN
     Route: 047
     Dates: start: 20191216

REACTIONS (7)
  - Retinal disorder [Unknown]
  - Blister [Unknown]
  - Vision blurred [Unknown]
  - Impaired driving ability [Unknown]
  - Eye inflammation [Unknown]
  - Visual impairment [Unknown]
  - Visual acuity reduced [Unknown]

NARRATIVE: CASE EVENT DATE: 20200127
